FAERS Safety Report 8353758-3 (Version None)
Quarter: 2012Q2

REPORT INFORMATION
  Report Type: 
  Country: None (occurrence: None)
  Receive Date: 20120511
  Receipt Date: 20111021
  Transmission Date: 20120825
  Serious: No
  Sender: FDA-Public Use
  Company Number: US-GLAXOSMITHKLINE-A0950467A

PATIENT
  Sex: Female
  Weight: 79.1 kg

DRUGS (9)
  1. TRILEPTAL [Concomitant]
     Dosage: 300MG UNKNOWN
     Route: 048
  2. XELODA [Suspect]
     Indication: PRODUCT USED FOR UNKNOWN INDICATION
     Route: 065
  3. METOPROLOL SUCCINATE [Concomitant]
     Dosage: 25MG UNKNOWN
  4. LEVOTHYROXINE SODIUM [Concomitant]
     Dosage: 100MCG UNKNOWN
     Route: 048
  5. AMLODIPINE BESYLATE [Concomitant]
     Dosage: 5MG UNKNOWN
     Route: 048
  6. HYDRALAZINE HCL [Concomitant]
     Dosage: 10MG UNKNOWN
     Route: 048
  7. CLONIDINE [Concomitant]
     Dosage: .1MG UNKNOWN
     Route: 048
  8. TYKERB [Suspect]
     Indication: PRODUCT USED FOR UNKNOWN INDICATION
     Dosage: 1250MGD PER DAY
     Route: 048
     Dates: start: 20110901
  9. PRILOSEC [Concomitant]
     Dosage: 20MG UNKNOWN
     Route: 048

REACTIONS (5)
  - CHEST PAIN [None]
  - SKIN DISCOLOURATION [None]
  - VOMITING [None]
  - DIARRHOEA [None]
  - ORAL DISORDER [None]
